FAERS Safety Report 8515096-5 (Version None)
Quarter: 2012Q3

REPORT INFORMATION
  Report Type: 
  Country: None (occurrence: None)
  Receive Date: 20120717
  Receipt Date: 20120711
  Transmission Date: 20120928
  Serious: Yes (Life-Threatening)
  Sender: FDA-Public Use
  Company Number: JP-ASTRAZENECA-2012SE48017

PATIENT
  Age: 81 Year
  Sex: Male
  Weight: 64 kg

DRUGS (7)
  1. FENTANYL [Concomitant]
     Route: 042
  2. ROPIVACAINE HYDROCHLORIDE [Suspect]
     Indication: ANALGESIC THERAPY
     Dosage: 100 ML OF ANAPEINE (ROPIVACAINE HYDROCHLORIDE HYDRATE) WAS ADMINISTERED BY 4ML/HR
     Route: 008
  3. DIPRIVAN [Suspect]
     Indication: INDUCTION AND MAINTENANCE OF ANAESTHESIA
     Route: 042
  4. DROPERIDOL [Concomitant]
     Indication: ANALGESIC THERAPY
     Dosage: 2.5 MG OF DROPERIDOL WAS ADMINISTERED BY 4 ML/HR
     Route: 008
  5. XYLOCAINE [Suspect]
     Indication: EPIDURAL ANAESTHESIA
     Dosage: 2 X105 FOLDING DILUTED ADRENALINE: 4 ML
     Route: 008
  6. DIPRIVAN [Suspect]
     Route: 042
  7. ROCURONIUM BROMIDE [Concomitant]
     Indication: HYPOTONIA
     Dosage: AT INDUCTION: 40 MG AT MAINTENANCE: 0.4 MG/KG/HR
     Route: 042

REACTIONS (1)
  - BUNDLE BRANCH BLOCK LEFT [None]
